FAERS Safety Report 6175904-2 (Version None)
Quarter: 2009Q2

REPORT INFORMATION
  Report Type: 
  Country: None (occurrence: None)
  Receive Date: 20090501
  Receipt Date: 20070816
  Transmission Date: 20091009
  Serious: Yes (Hospitalization)
  Sender: FDA-Public Use
  Company Number: US-ALEXION-A200700022

PATIENT

DRUGS (29)
  1. ECULIZUMAB [Suspect]
     Dosage: 600 MG, SINGLE
     Route: 042
     Dates: start: 20070411, end: 20070411
  2. ECULIZUMAB [Suspect]
     Dosage: 600 MG, SINGLE
     Route: 042
     Dates: start: 20070418, end: 20070418
  3. ECULIZUMAB [Suspect]
     Dosage: 600 MG, SINGLE
     Route: 042
     Dates: start: 20070425, end: 20070425
  4. ECULIZUMAB [Suspect]
     Dosage: 600 MG, SINGLE
     Route: 042
     Dates: start: 20070502, end: 20070502
  5. ECULIZUMAB [Suspect]
     Dosage: 900 MG, SINGLE
     Route: 042
     Dates: start: 20070509, end: 20070509
  6. ECULIZUMAB [Suspect]
     Dosage: 900 MG, SINGLE
     Route: 042
     Dates: start: 20070523, end: 20070523
  7. ECULIZUMAB [Suspect]
     Dosage: 900 MG, SINGLE
     Route: 042
     Dates: start: 20070606, end: 20070606
  8. ECULIZUMAB [Suspect]
     Dosage: 900 MG, SINGLE
     Route: 042
     Dates: start: 20070620, end: 20070620
  9. ECULIZUMAB [Suspect]
     Dosage: 900 MG, SINGLE
     Route: 042
     Dates: start: 20070712, end: 20070712
  10. ECULIZUMAB [Suspect]
     Dosage: 900 MG, SINGLE
     Route: 042
     Dates: start: 20070724, end: 20070724
  11. ACETAMINOPHEN [Concomitant]
     Route: 048
  12. K-DUR [Concomitant]
     Route: 048
  13. ASCORBIC ACID [Concomitant]
     Route: 048
  14. LEXAPRO [Concomitant]
     Dosage: UNK, QD
     Route: 048
  15. COLECALCIFEROL [Concomitant]
     Route: 048
  16. SIMVASTATIN [Concomitant]
     Dosage: UNK, QD
     Route: 048
  17. PRILOSEC [Concomitant]
  18. KEPPRA [Concomitant]
     Indication: CONVULSION
  19. FOLIC ACID [Concomitant]
  20. LOVENOX [Concomitant]
     Indication: ANTICOAGULANT THERAPY
     Dosage: 60 MG, QD
     Route: 058
     Dates: end: 20070801
  21. LOVENOX [Concomitant]
     Dosage: 30 MG, QD
     Route: 058
     Dates: start: 20070801
  22. PLAVIX [Concomitant]
     Indication: ANTICOAGULANT THERAPY
     Dosage: UNK, QD
     Route: 048
  23. COLACE [Concomitant]
     Dosage: UNK, QD
     Route: 048
  24. NEXIUM [Concomitant]
     Dosage: UNK, QD
     Route: 048
  25. IRON [Concomitant]
     Dosage: UNK, QD
     Route: 048
  26. DULCOLAX                           /00064401/ [Concomitant]
     Dosage: UNK, QD
     Route: 048
  27. BENADRYL [Concomitant]
     Dosage: UNK, QD
     Route: 048
  28. BLOOD AND RELATED PRODUCTS [Concomitant]
     Indication: PAROXYSMAL NOCTURNAL HAEMOGLOBINURIA
     Dosage: Q2WK
     Route: 042
  29. ASPIRIN [Concomitant]
     Indication: ANTICOAGULANT THERAPY
     Dosage: UNK, UNK
     Dates: end: 20070101

REACTIONS (6)
  - ANAEMIA [None]
  - CEREBELLAR ARTERY THROMBOSIS [None]
  - CEREBROVASCULAR ACCIDENT [None]
  - FUNGAL INFECTION [None]
  - SYNCOPE [None]
  - URINARY TRACT INFECTION [None]
